FAERS Safety Report 6662116-9 (Version None)
Quarter: 2010Q1

REPORT INFORMATION
  Report Type: 
  Country: None (occurrence: None)
  Receive Date: 20100331
  Receipt Date: 20100326
  Transmission Date: 20100710
  Serious: Yes (Life-Threatening, Hospitalization, Other)
  Sender: FDA-Public Use
  Company Number: US-PFIZER INC-2009268544

PATIENT
  Sex: Female
  Weight: 68.9 kg

DRUGS (7)
  1. SUNITINIB MALATE [Suspect]
     Indication: NON-SMALL CELL LUNG CANCER
     Dosage: 25 MG, DAILY SCHEDULE 2/1
     Route: 048
     Dates: start: 20090605, end: 20090909
  2. PEMETREXED [Suspect]
     Indication: NON-SMALL CELL LUNG CANCER
     Dosage: 940 MG, CYCLIC, EVERY 3 WEEKS
     Route: 042
     Dates: start: 20090604, end: 20090827
  3. CISPLATIN [Suspect]
     Indication: NON-SMALL CELL LUNG CANCER
     Dosage: 141 MG, CYCLIC, EVERY 3 WEEKS
     Route: 042
     Dates: start: 20090604, end: 20090827
  4. ATIVAN [Concomitant]
     Indication: ANXIETY
     Dosage: 1 MG, AS NEEDED
     Dates: start: 20070527
  5. COMPAZINE [Concomitant]
     Indication: PROPHYLAXIS OF NAUSEA AND VOMITING
     Dosage: 10 MG, AS NEEDED
     Dates: start: 20070604
  6. MINOCYCLINE [Concomitant]
     Indication: RASH
     Dosage: 100 MG, ALTERNATE DAY
     Dates: start: 20080101
  7. FRAGMIN [Concomitant]
     Indication: DEEP VEIN THROMBOSIS
     Dosage: 200 IU/KG, 1X/DAY
     Dates: start: 20090709

REACTIONS (1)
  - AORTIC DISSECTION [None]
